FAERS Safety Report 23211540 (Version 1)
Quarter: 2023Q4

REPORT INFORMATION
  Report Type: Report from Study
  Country: IT (occurrence: IT)
  Receive Date: 20231121
  Receipt Date: 20231121
  Transmission Date: 20240109
  Serious: Yes (Hospitalization)
  Sender: FDA-Public Use
  Company Number: None

PATIENT
  Age: 12 Hour
  Sex: Female
  Weight: 2 kg

DRUGS (2)
  1. PHENYTOIN [Suspect]
     Active Substance: PHENYTOIN
     Indication: Epilepsy
     Dosage: 14/10 - 34 MG AT 15 H; 15/10 - 5 MG 2 TIMES/DAY; 16/10 - 5 MG 2 TIMES/DAY
     Route: 042
     Dates: start: 20231014, end: 20231016
  2. OMEPRAZOLE [Suspect]
     Active Substance: OMEPRAZOLE
     Indication: Product used for unknown indication
     Dosage: UNK
     Route: 042
     Dates: start: 20231014, end: 20231019

REACTIONS (3)
  - Sopor [Recovered/Resolved]
  - Respiratory depression [Recovered/Resolved]
  - Drug level increased [Recovered/Resolved]

NARRATIVE: CASE EVENT DATE: 20231016
